FAERS Safety Report 26091577 (Version 1)
Quarter: 2025Q4

REPORT INFORMATION
  Report Type: Spontaneous
  Country: EU (occurrence: EU)
  Receive Date: 20251126
  Receipt Date: 20251126
  Transmission Date: 20260117
  Serious: Yes (Death, Life-Threatening, Hospitalization, Disabling, Other)
  Sender: TEVA
  Company Number: None

PATIENT
  Age: 80 Year
  Sex: Female

DRUGS (4)
  1. PANTOPRAZOLE [Suspect]
     Active Substance: PANTOPRAZOLE
     Indication: Gastrooesophageal reflux disease
     Dosage: BRAND NAME NOT SPECIFIED,ENTERIC-COATED TABLET
     Route: 048
     Dates: start: 2015, end: 202412
  2. IBUPROFEN [Concomitant]
     Active Substance: IBUPROFEN
     Indication: Product used for unknown indication
     Dates: end: 202412
  3. OMEPRAZOLE [Suspect]
     Active Substance: OMEPRAZOLE
     Indication: Gastrooesophageal reflux disease
     Dosage: ENTEROCAPS
     Route: 048
  4. PREDNISOLONE [Suspect]
     Active Substance: PREDNISOLONE
     Indication: Myalgia
     Route: 048

REACTIONS (5)
  - Polyneuropathy [Fatal]
  - Osteoporosis [Fatal]
  - Deafness [Fatal]
  - Urinary tract infection [Fatal]
  - Dementia [Fatal]
